FAERS Safety Report 5531550-2 (Version None)
Quarter: 2007Q4

REPORT INFORMATION
  Report Type: 
  Country: None (occurrence: None)
  Receive Date: 20071127
  Receipt Date: 20071127
  Transmission Date: 20080405
  Serious: Yes (Hospitalization)
  Sender: FDA-Public Use
  Company Number: None

PATIENT
  Age: 63 Year
  Sex: Male
  Weight: 80.8 kg

DRUGS (2)
  1. SIMVASTATIN [Suspect]
     Indication: HYPERLIPIDAEMIA
     Dosage: 20MG EVERY DAY PO
     Route: 048
     Dates: start: 20030123, end: 20071028
  2. GEMFIBROZIL [Suspect]
     Indication: HYPERLIPIDAEMIA
     Dosage: 600 MG BID PO
     Route: 048
     Dates: start: 20010612, end: 20071028

REACTIONS (8)
  - COUGH [None]
  - HEPATIC ENZYME INCREASED [None]
  - NAUSEA [None]
  - PYREXIA [None]
  - RHABDOMYOLYSIS [None]
  - THROMBOCYTOPENIA [None]
  - VIRAL TEST POSITIVE [None]
  - VOMITING [None]
